FAERS Safety Report 5759544-2 (Version None)
Quarter: 2008Q2

REPORT INFORMATION
  Report Type: 
  Country: None (occurrence: None)
  Receive Date: 20080605
  Receipt Date: 20080529
  Transmission Date: 20081010
  Serious: Yes (Disabling)
  Sender: FDA-Public Use
  Company Number: ZA-AVENTIS-200812554EU

PATIENT
  Sex: Female

DRUGS (1)
  1. CLEXANE [Suspect]
     Dosage: DOSE: UNK

REACTIONS (1)
  - NERVE INJURY [None]
